FAERS Safety Report 6273275-4 (Version None)
Quarter: 2009Q3

REPORT INFORMATION
  Report Type: 
  Country: None (occurrence: None)
  Receive Date: 20090720
  Receipt Date: 20090716
  Transmission Date: 20100115
  Serious: Yes (Other)
  Sender: FDA-Public Use
  Company Number: US-TEVA-202333USA

PATIENT
  Sex: Female

DRUGS (1)
  1. CLARAVIS CAPSULE, ISOTRETINOIN, 10MG [Suspect]
     Indication: ACNE
     Route: 048
     Dates: start: 20081202, end: 20090401

REACTIONS (4)
  - DEPRESSION [None]
  - SUICIDAL IDEATION [None]
  - VULVOVAGINAL DRYNESS [None]
  - VULVOVAGINAL PAIN [None]
